FAERS Safety Report 7815310-5 (Version None)
Quarter: 2011Q4

REPORT INFORMATION
  Report Type: 
  Country: None (occurrence: None)
  Receive Date: 20111014
  Receipt Date: 20111011
  Transmission Date: 20120403
  Serious: Yes (Hospitalization)
  Sender: FDA-Public Use
  Company Number: ES-BAYER-2011-098349

PATIENT
  Age: 79 Year
  Sex: Male

DRUGS (7)
  1. DILTIAZEM HCL [Concomitant]
     Indication: MYOCARDIAL INFARCTION
  2. ATORVASTATIN [Concomitant]
     Indication: MYOCARDIAL INFARCTION
  3. LORAZEPAM [Concomitant]
     Indication: MYOCARDIAL INFARCTION
  4. CIPROFLOXACIN [Suspect]
     Indication: URINARY TRACT INFECTION
     Dosage: UNK
     Dates: start: 20040601
  5. ASPIRIN [Concomitant]
     Indication: MYOCARDIAL INFARCTION
  6. MOXIFLOXACIN [Suspect]
     Indication: URINARY TRACT INFECTION
     Dosage: UNK
     Dates: start: 20041001
  7. NITROGLYCERIN [Concomitant]
     Indication: MYOCARDIAL INFARCTION

REACTIONS (1)
  - AUTOIMMUNE HEPATITIS [None]
